FAERS Safety Report 9819471 (Version 1)
Quarter: 2014Q1

REPORT INFORMATION
  Report Type: Spontaneous
  Country: US (occurrence: US)
  Receive Date: 20140115
  Receipt Date: 20140115
  Transmission Date: 20141002
  Serious: Yes (Death, Other)
  Sender: FDA-Public Use
  Company Number: US-PFIZER INC-2014012712

PATIENT
  Age: 62 Year
  Sex: 0

DRUGS (1)
  1. LYRICA [Suspect]
     Indication: PAIN
     Dosage: 100 MG, DAILY

REACTIONS (1)
  - Death [Fatal]
